FAERS Safety Report 15819477 (Version 4)
Quarter: 2020Q1

REPORT INFORMATION
  Report Type: Report from Study
  Country: DE (occurrence: DE)
  Receive Date: 20190114
  Receipt Date: 20200229
  Transmission Date: 20200409
  Serious: No
  Sender: FDA-Public Use
  Company Number: DE-ROCHE-2244448

PATIENT
  Age: 50 Year
  Sex: Female
  Weight: 75 kg

DRUGS (4)
  1. DEKRISTOL [Concomitant]
     Active Substance: CHOLECALCIFEROL
     Indication: PROPHYLAXIS
     Dosage: INDICATION: VITAMIN D PROPHYLAXIS
     Route: 048
  2. OCRELIZUMAB. [Suspect]
     Active Substance: OCRELIZUMAB
     Indication: PRIMARY PROGRESSIVE MULTIPLE SCLEROSIS
     Dosage: ON 13/SEP/2018, MOST RECENT DOSE
     Route: 042
     Dates: start: 20180830, end: 20180913
  3. SPASMEX [TROSPIUM CHLORIDE] [Concomitant]
     Indication: MICTURITION URGENCY
     Route: 048
     Dates: start: 201908
  4. KALIUMJODID [Concomitant]
     Indication: THYROID DISORDER
     Route: 048
     Dates: start: 2015

REACTIONS (1)
  - Urinary tract infection [Recovered/Resolved]

NARRATIVE: CASE EVENT DATE: 20190108
